FAERS Safety Report 4625935-6 (Version None)
Quarter: 2005Q1

REPORT INFORMATION
  Report Type: 
  Country: None (occurrence: None)
  Receive Date: 20050330
  Receipt Date: 20050317
  Transmission Date: 20050727
  Serious: Yes (Other)
  Sender: FDA-Public Use
  Company Number: 2004109500

PATIENT
  Age: 42 Year
  Sex: Male

DRUGS (1)
  1. BEXTRA [Suspect]
     Indication: PAIN
     Dosage: 10 MG (10 MG, 1 IN 1 D), ORAL
     Route: 048
     Dates: start: 20041117, end: 20041120

REACTIONS (2)
  - RASH GENERALISED [None]
  - RASH MACULO-PAPULAR [None]
